FAERS Safety Report 5954236-9 (Version None)
Quarter: 2008Q4

REPORT INFORMATION
  Report Type: 
  Country: None (occurrence: None)
  Receive Date: 20081117
  Receipt Date: 20081114
  Transmission Date: 20090506
  Serious: Yes (Hospitalization)
  Sender: FDA-Public Use
  Company Number: BR-ABBOTT-08P-020-0486299-00

PATIENT
  Sex: Female
  Weight: 54 kg

DRUGS (5)
  1. DEPAKENE [Suspect]
     Indication: EPILEPSY
     Route: 048
     Dates: start: 19930101, end: 20080801
  2. DEPAKENE [Suspect]
     Route: 048
     Dates: start: 20080801, end: 20081001
  3. DEPAKOTE [Suspect]
     Indication: EPILEPSY
     Route: 048
     Dates: start: 20080801, end: 20081001
  4. DEPAKOTE [Suspect]
     Route: 048
     Dates: start: 20081001, end: 20081105
  5. LEVOTHYROXINE SODIUM [Concomitant]
     Indication: HYPOTHYROIDISM
     Route: 048

REACTIONS (5)
  - ADNEXA UTERI PAIN [None]
  - CONVULSION [None]
  - FEELING ABNORMAL [None]
  - NAUSEA [None]
  - OVARIAN DISORDER [None]
